FAERS Safety Report 14033276 (Version 1)
Quarter: 2017Q4

REPORT INFORMATION
  Report Type: Spontaneous
  Country: US (occurrence: US)
  Receive Date: 20171002
  Receipt Date: 20171002
  Transmission Date: 20180321
  Serious: No
  Sender: FDA-Public Use
  Company Number: US-JAZZ-2017-US-010150

PATIENT
  Sex: Female

DRUGS (2)
  1. XYREM [Suspect]
     Active Substance: SODIUM OXYBATE
     Indication: NARCOLEPSY
     Dosage: 2.25G, BID
     Route: 048
     Dates: start: 201707
  2. XYREM [Suspect]
     Active Substance: SODIUM OXYBATE
     Indication: CATAPLEXY

REACTIONS (7)
  - Dyspepsia [Unknown]
  - Muscle spasms [Unknown]
  - Condition aggravated [Not Recovered/Not Resolved]
  - Anxiety [Unknown]
  - Headache [Unknown]
  - Nausea [Unknown]
  - Amnesia [Not Recovered/Not Resolved]
